FAERS Safety Report 12176103 (Version 1)
Quarter: 2016Q1

REPORT INFORMATION
  Report Type: Report from Study
  Country: US (occurrence: US)
  Receive Date: 20160314
  Receipt Date: 20160314
  Transmission Date: 20160526
  Serious: No
  Sender: FDA-Public Use
  Company Number: PHHY2012US136359

PATIENT
  Sex: Female

DRUGS (13)
  1. LISINOPRIL. [Suspect]
     Active Substance: LISINOPRIL
     Indication: PRODUCT USED FOR UNKNOWN INDICATION
     Dosage: UNK
     Route: 065
  2. NIFEDIPINE XL [Concomitant]
     Active Substance: NIFEDIPINE
     Indication: PRODUCT USED FOR UNKNOWN INDICATION
     Dosage: 30 MG, 1 IN 1 DAY
     Route: 065
  3. CELLCEPT [Suspect]
     Active Substance: MYCOPHENOLATE MOFETIL\MYCOPHENOLATE MOFETIL HYDROCHLORIDE
     Indication: SCLERODERMA
     Dosage: 500 MG, 2 IN 1 TO 2 WEEKS
     Route: 048
  4. CELLCEPT [Suspect]
     Active Substance: MYCOPHENOLATE MOFETIL\MYCOPHENOLATE MOFETIL HYDROCHLORIDE
     Dosage: 300 MG, UNK
     Route: 048
  5. GLIPIZIDE. [Concomitant]
     Active Substance: GLIPIZIDE
     Indication: PRODUCT USED FOR UNKNOWN INDICATION
     Dosage: 5 MG, 2 IN 1 DAY
     Route: 065
  6. TRAMADOL. [Concomitant]
     Active Substance: TRAMADOL
     Indication: PRODUCT USED FOR UNKNOWN INDICATION
     Dosage: 50 MG, 4 TO 6 TABLETS PER DAY
     Route: 065
  7. CELLCEPT [Suspect]
     Active Substance: MYCOPHENOLATE MOFETIL\MYCOPHENOLATE MOFETIL HYDROCHLORIDE
     Indication: OFF LABEL USE
     Dosage: 1500 MG, BID (500 MG)
     Route: 048
  8. LASIX [Concomitant]
     Active Substance: FUROSEMIDE
     Indication: PRODUCT USED FOR UNKNOWN INDICATION
     Dosage: 40 MG,1 IN 1 AS REQUIRED
     Route: 065
  9. GLUCOPHAGE [Concomitant]
     Active Substance: METFORMIN HYDROCHLORIDE
     Indication: PRODUCT USED FOR UNKNOWN INDICATION
     Dosage: 500 MG, 2 IN 1 DAY
     Route: 065
  10. XOLAIR [Suspect]
     Active Substance: OMALIZUMAB
     Indication: PRODUCT USED FOR UNKNOWN INDICATION
     Dosage: UNK
     Route: 065
  11. ZOCOR [Concomitant]
     Active Substance: SIMVASTATIN
     Indication: PRODUCT USED FOR UNKNOWN INDICATION
     Dosage: 40 MG, 1 IN 1 DAY
     Route: 065
  12. NEXIUM I.V. [Concomitant]
     Active Substance: ESOMEPRAZOLE SODIUM
     Indication: PRODUCT USED FOR UNKNOWN INDICATION
     Dosage: 40 MG, 1 IN 1 DAY
     Route: 065
  13. VICODIN [Concomitant]
     Active Substance: ACETAMINOPHEN\HYDROCODONE BITARTRATE
     Indication: PRODUCT USED FOR UNKNOWN INDICATION
     Dosage: 5/500 MG 1 OR 2 TIMES DAILY
     Route: 065

REACTIONS (21)
  - Raynaud^s phenomenon [Unknown]
  - Telangiectasia [Unknown]
  - Skin fissures [Unknown]
  - Dysphagia [Unknown]
  - Goitre [Unknown]
  - Fatigue [Unknown]
  - Skin hypertrophy [Unknown]
  - Off label use [Unknown]
  - Dyspnoea exertional [Unknown]
  - Constipation [Unknown]
  - Musculoskeletal stiffness [Unknown]
  - Drug hypersensitivity [Unknown]
  - Hypotension [Unknown]
  - Decreased activity [Unknown]
  - Skin ulcer [Unknown]
  - Tendon disorder [Unknown]
  - Systemic sclerosis [Unknown]
  - Arthralgia [Unknown]
  - Dry mouth [Unknown]
  - Muscle atrophy [Unknown]
  - Muscular weakness [Unknown]
